FAERS Safety Report 8303499-3 (Version None)
Quarter: 2012Q2

REPORT INFORMATION
  Report Type: 
  Country: None (occurrence: None)
  Receive Date: 20120423
  Receipt Date: 20120418
  Transmission Date: 20120825
  Serious: Yes (Other)
  Sender: FDA-Public Use
  Company Number: US-SHIRE-ALL1-2012-01993

PATIENT
  Sex: Female
  Weight: 27.211 kg

DRUGS (5)
  1. VYVANSE [Suspect]
     Dosage: 40 MG, 1X/DAY:QD
     Route: 048
     Dates: start: 20120413, end: 20120414
  2. VYVANSE [Suspect]
     Dosage: 30 MG, 1X/DAY:QD
     Route: 048
     Dates: start: 20110101, end: 20120412
  3. STRATTERA [Suspect]
     Indication: ATTENTION DEFICIT/HYPERACTIVITY DISORDER
     Dosage: 18 MG, 1X/DAY:QD
     Route: 048
     Dates: start: 20120413, end: 20120414
  4. VYVANSE [Suspect]
     Indication: ATTENTION DEFICIT/HYPERACTIVITY DISORDER
     Dosage: 20 MG, 1X/DAY:QD
     Route: 048
     Dates: start: 20110101, end: 20110101
  5. UNSPECIFIED SLEEP MEDICATION [Concomitant]
     Indication: SLEEP DISORDER
     Dosage: UNK, UNKNOWN
     Route: 065

REACTIONS (5)
  - BRUXISM [None]
  - LOSS OF CONSCIOUSNESS [None]
  - POSTURING [None]
  - HEAD DISCOMFORT [None]
  - CONDUCT DISORDER [None]
